FAERS Safety Report 7993206-6 (Version None)
Quarter: 2011Q4

REPORT INFORMATION
  Report Type: 
  Country: None (occurrence: None)
  Receive Date: 20111219
  Receipt Date: 20111011
  Transmission Date: 20120403
  Serious: No
  Sender: FDA-Public Use
  Company Number: US-ASTRAZENECA-2011SE60957

PATIENT
  Age: 61 Year
  Sex: Male

DRUGS (4)
  1. CRESTOR [Suspect]
     Route: 048
  2. CRESTOR [Suspect]
     Route: 048
  3. ASPIRIN [Concomitant]
  4. PLAVIX [Concomitant]

REACTIONS (2)
  - RASH [None]
  - ASTHMA [None]
